FAERS Safety Report 8630945 (Version 5)
Quarter: 2015Q2

REPORT INFORMATION
  Report Type: Report from Study
  Country: NL (occurrence: NL)
  Receive Date: 20120622
  Receipt Date: 20150427
  Transmission Date: 20150821
  Serious: Yes (Life-Threatening, Hospitalization, Other)
  Sender: FDA-Public Use
  Company Number: PHHO2012NL006740

PATIENT
  Age: 68 Year
  Sex: Male
  Weight: 74 kg

DRUGS (4)
  1. ALISKIREN [Suspect]
     Active Substance: ALISKIREN
     Indication: CARDIAC FAILURE
     Dosage: 150 MG, QD
     Route: 048
     Dates: start: 20120502, end: 20120507
  2. NO TREATMENT RECEIVED [Suspect]
     Active Substance: UNSPECIFIED INGREDIENT
     Indication: CARDIAC FAILURE
     Dosage: NO TREATMENT
     Route: 065
  3. SOTALOL. [Concomitant]
     Active Substance: SOTALOL
     Indication: CARDIOMYOPATHY
     Dosage: 160 MG, BID
     Route: 048
     Dates: start: 20030207, end: 20120428
  4. COMPARATOR ENALAPRIL [Suspect]
     Active Substance: ENALAPRIL
     Indication: CARDIAC FAILURE
     Dosage: 20 MG, BID
     Route: 048
     Dates: start: 20120418, end: 20120510

REACTIONS (3)
  - Renal failure [Recovered/Resolved]
  - Cardiac failure [Recovered/Resolved with Sequelae]
  - Ventricular tachycardia [Recovered/Resolved]

NARRATIVE: CASE EVENT DATE: 20120428
